FAERS Safety Report 5846196-6 (Version None)
Quarter: 2008Q3

REPORT INFORMATION
  Report Type: 
  Country: None (occurrence: None)
  Receive Date: 20080813
  Receipt Date: 20080806
  Transmission Date: 20090109
  Serious: Yes (Hospitalization)
  Sender: FDA-Public Use
  Company Number: SPV1-2008-01669

PATIENT
  Age: 48 Year
  Sex: Male
  Weight: 90.7 kg

DRUGS (3)
  1. ADDERALL XR 30 [Suspect]
     Indication: THINKING ABNORMAL
     Dosage: 30 MG, 1X/DAY:QD, ORAL
     Route: 048
     Dates: start: 20070604, end: 20070823
  2. HALDOL SOLUTAB [Concomitant]
  3. COGENTIN [Concomitant]

REACTIONS (4)
  - DRUG ABUSE [None]
  - HALLUCINATION [None]
  - OVERDOSE [None]
  - SUICIDAL IDEATION [None]
